FAERS Safety Report 9321436 (Version 1)
Quarter: 2013Q2

REPORT INFORMATION
  Report Type: Spontaneous
  Country: CA (occurrence: CA)
  Receive Date: 20130531
  Receipt Date: 20130531
  Transmission Date: 20140414
  Serious: Yes (Other)
  Sender: FDA-Public Use
  Company Number: CA-TEVA-409007USA

PATIENT
  Age: 62 Year
  Sex: Female
  Weight: 59 kg

DRUGS (5)
  1. CARBOPLATIN [Suspect]
     Dosage: 24.0476 MILLIGRAM DAILY; SOLUTION INTRAVENOUS
     Route: 042
  2. BENADRYL [Concomitant]
     Route: 065
  3. DEXAMETHASONE [Concomitant]
     Route: 065
  4. ONDANSETRON [Concomitant]
     Route: 065
  5. RANITIDINE [Concomitant]
     Route: 065

REACTIONS (10)
  - Dyspnoea [Recovered/Resolved]
  - Feeling abnormal [Recovered/Resolved]
  - Flushing [Recovered/Resolved]
  - Heart rate increased [Recovered/Resolved]
  - Oxygen saturation decreased [Recovered/Resolved]
  - Pruritus [Recovered/Resolved]
  - Respiratory rate increased [Recovered/Resolved]
  - Erythema [Recovered/Resolved]
  - Nausea [Recovered/Resolved]
  - Blood pressure increased [Recovered/Resolved]
